FAERS Safety Report 5674499-7 (Version None)
Quarter: 2008Q1

REPORT INFORMATION
  Report Type: 
  Country: None (occurrence: None)
  Receive Date: 20080317
  Receipt Date: 20080229
  Transmission Date: 20080703
  Serious: Yes (Death, Other)
  Sender: FDA-Public Use
  Company Number: 2008JP001067

PATIENT
  Sex: Female

DRUGS (4)
  1. PROGRAF [Suspect]
     Indication: BONE MARROW TRANSPLANT
  2. METHOTREXATE [Concomitant]
  3. METHYLPREDNISOLONE [Concomitant]
  4. GANCICLOVIR [Concomitant]

REACTIONS (8)
  - ACUTE RESPIRATORY DISTRESS SYNDROME [None]
  - CYTOMEGALOVIRUS ENTEROCOLITIS [None]
  - INTESTINAL HAEMORRHAGE [None]
  - MALNUTRITION [None]
  - SEPSIS [None]
  - THROMBOTIC MICROANGIOPATHY [None]
  - TOXIC ENCEPHALOPATHY [None]
  - VENOOCCLUSIVE LIVER DISEASE [None]
